FAERS Safety Report 9147876 (Version 4)
Quarter: 2013Q3

REPORT INFORMATION
  Report Type: Report from Study
  Country: JP (occurrence: JP)
  Receive Date: 20130307
  Receipt Date: 20130816
  Transmission Date: 20140515
  Serious: Yes (Hospitalization)
  Sender: FDA-Public Use
  Company Number: JP-GILEAD-2013-0068389

PATIENT
  Age: 67 Year
  Sex: Female

DRUGS (20)
  1. AMBRISENTAN [Suspect]
     Indication: PULMONARY ARTERIAL HYPERTENSION
     Dosage: 2.5 MG, QD
     Route: 048
     Dates: start: 20130206, end: 20130209
  2. REVATIO [Concomitant]
     Indication: PULMONARY HYPERTENSION
     Dosage: 20MG THREE TIMES PER DAY
     Route: 048
     Dates: start: 20120927
  3. WARFARIN [Concomitant]
     Indication: ATRIAL FIBRILLATION
     Dosage: 1MG PER DAY
     Route: 048
  4. ARTIST [Concomitant]
     Indication: ATRIAL FIBRILLATION
     Dosage: 1.25MG TWICE PER DAY
     Route: 048
  5. ARTIST [Concomitant]
     Dosage: 1.25MG TWICE PER DAY
     Route: 048
  6. ARTIST [Concomitant]
     Dosage: 1.25MG TWICE PER DAY
     Route: 048
  7. ARTIST [Concomitant]
     Dosage: 1.25MG TWICE PER DAY
     Route: 048
  8. ARTIST [Concomitant]
     Dosage: 1.25MG TWICE PER DAY
     Route: 048
  9. SUNRYTHM [Concomitant]
     Indication: ATRIAL FIBRILLATION
     Dosage: 25MG THREE TIMES PER DAY
     Route: 048
  10. SUNRYTHM [Concomitant]
     Dosage: 25MG THREE TIMES PER DAY
     Route: 048
  11. SUNRYTHM [Concomitant]
     Dosage: 25MG THREE TIMES PER DAY
     Route: 048
  12. SUNRYTHM [Concomitant]
     Dosage: 25MG THREE TIMES PER DAY
     Route: 048
  13. SUNRYTHM [Concomitant]
     Dosage: 25MG THREE TIMES PER DAY
     Route: 048
  14. PREDONINE                          /00016201/ [Concomitant]
     Indication: AUTOIMMUNE HEPATITIS
     Dosage: 5MG PER DAY
     Route: 048
  15. TAKEPRON [Concomitant]
     Route: 048
  16. TAKEPRON [Concomitant]
     Route: 048
  17. URSO                               /00465701/ [Concomitant]
     Route: 048
  18. SLOW-K [Concomitant]
     Route: 048
  19. SLOW-K [Concomitant]
     Route: 048
  20. MACACY-A [Concomitant]
     Dosage: UNK MG, UNK
     Route: 048
     Dates: start: 20130130

REACTIONS (4)
  - Cardiac failure [Recovered/Resolved]
  - Anaemia [Recovered/Resolved]
  - Fluid retention [Recovered/Resolved]
  - Fluid retention [Recovered/Resolved]
